FAERS Safety Report 5070109-0 (Version None)
Quarter: 2006Q3

REPORT INFORMATION
  Report Type: 
  Country: None (occurrence: None)
  Receive Date: 20060802
  Receipt Date: 20060802
  Transmission Date: 20061208
  Serious: Yes (Hospitalization)
  Sender: FDA-Public Use
  Company Number: None

PATIENT
  Age: 81 Year
  Sex: Male
  Weight: 63.9572 kg

DRUGS (1)
  1. FLUOROURACIL [Suspect]
     Indication: OESOPHAGEAL CARCINOMA
     Dosage: 750 MG IV PUSH ON DAYS 1-5 OF 28 DAY CYCLE (ON CYCLE #2)
     Route: 042

REACTIONS (2)
  - NEUTROPENIA [None]
  - URINARY TRACT INFECTION [None]
